FAERS Safety Report 7108731-X (Version None)
Quarter: 2010Q4

REPORT INFORMATION
  Report Type: 
  Country: None (occurrence: None)
  Receive Date: 20101115
  Receipt Date: 20101115
  Transmission Date: 20110411
  Serious: Yes (Disabling, Other)
  Sender: FDA-Public Use
  Company Number: None

PATIENT
  Age: 43 Year
  Sex: Female
  Weight: 54.4316 kg

DRUGS (1)
  1. NORVASC [Suspect]
     Indication: PRINZMETAL ANGINA
     Dosage: 10 MG DAILY PO
     Route: 048
     Dates: start: 19990602, end: 20031001

REACTIONS (1)
  - ALOPECIA [None]
